FAERS Safety Report 7985073-1 (Version None)
Quarter: 2011Q4

REPORT INFORMATION
  Report Type: 
  Country: None (occurrence: None)
  Receive Date: 20111216
  Receipt Date: 20111212
  Transmission Date: 20120403
  Serious: Yes (Hospitalization)
  Sender: FDA-Public Use
  Company Number: US-BAYER-2011-047623

PATIENT
  Age: 82 Year
  Sex: Male
  Weight: 58.503 kg

DRUGS (15)
  1. SORAFENIB (RAF KINASE INHIBITOR) [Suspect]
     Indication: THYROID CANCER
     Dosage: 400 MG, BID
     Route: 048
     Dates: start: 20110414, end: 20110512
  2. NAPROXEN SODIUM [Concomitant]
     Indication: MUSCULOSKELETAL CHEST PAIN
     Dosage: 440 MCG PRN
     Route: 048
     Dates: start: 20001022
  3. ACETAMINOPHEN [Concomitant]
     Indication: MUSCULOSKELETAL CHEST PAIN
     Dosage: 325 MG, PRN
     Route: 048
     Dates: start: 19901022
  4. SYNTHROID [Concomitant]
     Indication: HYPOTHYROIDISM
     Dosage: DAILY DOSE 175 MCG
     Route: 048
     Dates: start: 20090127
  5. VITAMIN D [Concomitant]
     Dosage: DAILY DOSE 1000 U
     Route: 048
     Dates: start: 20101029
  6. VITAMIN D [Concomitant]
     Indication: SUPPLEMENTATION THERAPY
     Dosage: DAILY DOSE 7000 U
     Route: 048
     Dates: start: 20090504, end: 20101028
  7. ROBITUSSIN EX [Concomitant]
     Indication: PRODUCTIVE COUGH
     Dosage: ONE TSP, PRN
     Route: 048
     Dates: start: 20110406, end: 20110421
  8. SORAFENIB (RAF KINASE INHIBITOR) [Suspect]
     Dosage: 200 MG QD + 400 MG QD, CYCLE 9
     Route: 048
     Dates: start: 20110609, end: 20110718
  9. PRINIVIL [Concomitant]
     Indication: HYPERTENSION
     Dosage: DAILY DOSE 40 MG
     Route: 048
     Dates: start: 20001022
  10. AZITHROMYCIN [Concomitant]
     Indication: BRONCHITIS
     Dosage: DAILY DOSE 500 MG
     Route: 048
     Dates: start: 20110406, end: 20110410
  11. PRAVACHOL [Concomitant]
     Indication: HYPERLIPIDAEMIA
     Dosage: DAILY DOSE 20 MG
     Route: 048
     Dates: start: 20000622
  12. SORAFENIB (RAF KINASE INHIBITOR) [Suspect]
     Dosage: 400 MG, BID
     Route: 048
     Dates: start: 20110512, end: 20110527
  13. ASPIRIN [Concomitant]
     Indication: HYPERLIPIDAEMIA
     Dosage: DAILY DOSE 81 MG
     Route: 048
     Dates: start: 20070422
  14. MEGACE [Concomitant]
     Indication: WEIGHT DECREASED
     Dosage: 4 DF, QD
     Route: 048
     Dates: start: 20110414, end: 20110730
  15. AMBIEN [Concomitant]
     Indication: INSOMNIA
     Dosage: UNK
     Dates: start: 20110606

REACTIONS (3)
  - DEHYDRATION [None]
  - CHRONIC RESPIRATORY FAILURE [None]
  - DYSPNOEA [None]
